FAERS Safety Report 24150276 (Version 1)
Quarter: 2024Q3

REPORT INFORMATION
  Report Type: Spontaneous
  Country: CN (occurrence: CN)
  Receive Date: 20240730
  Receipt Date: 20240730
  Transmission Date: 20241016
  Serious: Yes (Other)
  Sender: SANDOZ
  Company Number: CN-002147023-NVSC2024CN153665

PATIENT
  Age: 32 Year
  Sex: Male
  Weight: 56 kg

DRUGS (2)
  1. DEXAMETHASONE\TOBRAMYCIN [Suspect]
     Active Substance: DEXAMETHASONE\TOBRAMYCIN
     Indication: Scleritis
     Dosage: 4 DROP, QD, 1 DRP, QID (EXTERNAL USE)
     Route: 065
     Dates: start: 20240702, end: 20240705
  2. DEXAMETHASONE\TOBRAMYCIN [Suspect]
     Active Substance: DEXAMETHASONE\TOBRAMYCIN
     Indication: Scleritis
     Dosage: 4 DROP, QD, 1 DRP, QID (EXTERNAL USE)
     Route: 065
     Dates: start: 20240702, end: 20240705

REACTIONS (2)
  - Conjunctival hyperaemia [Recovered/Resolved]
  - Corneal exfoliation [Recovered/Resolved]

NARRATIVE: CASE EVENT DATE: 20240708
